FAERS Safety Report 4316903-2 (Version None)
Quarter: 2004Q1

REPORT INFORMATION
  Report Type: 
  Country: None (occurrence: None)
  Receive Date: 20040312
  Receipt Date: 20040312
  Transmission Date: 20041129
  Serious: Yes (Other)
  Sender: FDA-Public Use
  Company Number: None

PATIENT
  Sex: Female
  Weight: 113.3993 kg

DRUGS (21)
  1. SOLU-MEDROL [Suspect]
     Indication: MULTIPLE SCLEROSIS
     Dosage: 1 GM IV QD X 5 DAYS
     Route: 042
     Dates: start: 20040301, end: 20040305
  2. PLENDIL [Concomitant]
  3. CARAFATE [Concomitant]
  4. AMBIEN [Concomitant]
  5. DARVOCET-N 100 [Concomitant]
  6. LASIX [Concomitant]
  7. SLOW-K [Concomitant]
  8. WELLBUTRIN [Concomitant]
  9. PROVIGIL [Concomitant]
  10. COPAXONE [Concomitant]
  11. NEXIUM [Concomitant]
  12. ZANDEFLEX [Concomitant]
  13. LOPRESSOR [Concomitant]
  14. SEROQUEL [Concomitant]
  15. AMITRIPTYLINE HCL [Concomitant]
  16. PROCARIN [Concomitant]
  17. TOPICAL [Concomitant]
  18. XANAX [Concomitant]
  19. HEPARIN [Concomitant]
  20. NACL [Concomitant]
  21. DULCOLAX [Concomitant]

REACTIONS (1)
  - HALLUCINATION, VISUAL [None]
